FAERS Safety Report 6160695-1 (Version None)
Quarter: 2009Q2

REPORT INFORMATION
  Report Type: 
  Country: None (occurrence: None)
  Receive Date: 20090420
  Receipt Date: 20090408
  Transmission Date: 20091009
  Serious: Yes (Other)
  Sender: FDA-Public Use
  Company Number: GB-TEVA-191229ISR

PATIENT
  Age: 52 Year
  Sex: Female
  Weight: 109 kg

DRUGS (4)
  1. LEVOTHYROXINE SODIUM [Suspect]
  2. LEVOTHYROXINE SODIUM [Suspect]
  3. LEVOTHYROXINE SODIUM [Suspect]
  4. ORLISTAT [Suspect]
     Indication: OBESITY
     Route: 048
     Dates: start: 20080501, end: 20081212

REACTIONS (2)
  - BLOOD THYROID STIMULATING HORMONE INCREASED [None]
  - DRUG INTERACTION [None]
